FAERS Safety Report 24325423 (Version 2)
Quarter: 2024Q3

REPORT INFORMATION
  Report Type: Report from Study
  Country: GB (occurrence: GB)
  Receive Date: 20240917
  Receipt Date: 20240924
  Transmission Date: 20241017
  Serious: Yes (Hospitalization)
  Sender: SANDOZ
  Company Number: GB-SANDOZ-SDZ2024GB002115

PATIENT
  Sex: Female

DRUGS (1)
  1. ERELZI [Suspect]
     Active Substance: ETANERCEPT-SZZS
     Indication: Rheumatoid arthritis
     Dosage: 50 MG
     Route: 058

REACTIONS (3)
  - Hospitalisation [Not Recovered/Not Resolved]
  - Malaise [Unknown]
  - Vomiting [Unknown]
